FAERS Safety Report 9160332 (Version 1)
Quarter: 2013Q1

REPORT INFORMATION
  Report Type: Spontaneous
  Country: BR (occurrence: BR)
  Receive Date: 20130313
  Receipt Date: 20130313
  Transmission Date: 20140127
  Serious: Yes (Other)
  Sender: FDA-Public Use
  Company Number: BR-PFIZER INC-2013079094

PATIENT
  Age: 67 Year
  Sex: Female
  Weight: 75 kg

DRUGS (9)
  1. CELEBRA [Suspect]
     Indication: INTERVERTEBRAL DISC PROTRUSION
     Dosage: UNK
  2. CEBRALAT [Concomitant]
  3. SINTOCALMY [Concomitant]
  4. EUTIROX [Concomitant]
  5. GLIFAGE [Concomitant]
  6. JANUVIA [Concomitant]
  7. ROSUVAS [Concomitant]
  8. TAMARINE [Concomitant]
  9. TYLEX [Concomitant]

REACTIONS (2)
  - Obesity [Unknown]
  - Pain [Unknown]
